FAERS Safety Report 22899318 (Version 2)
Quarter: 2023Q4

REPORT INFORMATION
  Report Type: Spontaneous
  Country: US (occurrence: US)
  Receive Date: 20230904
  Receipt Date: 20231002
  Transmission Date: 20240109
  Serious: Yes (Hospitalization, Other)
  Sender: FDA-Public Use
  Company Number: US-NOVOPROD-1107879

PATIENT
  Age: 75 Year
  Sex: Male

DRUGS (1)
  1. RYBELSUS [Suspect]
     Active Substance: SEMAGLUTIDE
     Indication: Diabetes mellitus
     Dosage: 7 MG, QD, 30 MINUTES BEFORE ANY FOOD/DRINK. MEDICATION WITH NO MORE THAN 4 OZ PLAIN WATER
     Route: 048
     Dates: start: 20230320, end: 20230422

REACTIONS (3)
  - Hepatitis acute [Recovering/Resolving]
  - Pain in extremity [Unknown]
  - Confusional state [Unknown]

NARRATIVE: CASE EVENT DATE: 20230707
